FAERS Safety Report 6249077-1 (Version None)
Quarter: 2009Q2

REPORT INFORMATION
  Report Type: 
  Country: None (occurrence: None)
  Receive Date: 20090624
  Receipt Date: 20090604
  Transmission Date: 20091009
  Serious: Yes (Hospitalization)
  Sender: FDA-Public Use
  Company Number: 060001K09FRA

PATIENT
  Sex: Female

DRUGS (1)
  1. SEROPHEN  (CLOMIFENE CITRATE) [Suspect]
     Indication: OVULATION INDUCTION
     Dates: start: 20030101

REACTIONS (3)
  - PHLEBITIS [None]
  - PREGNANCY [None]
  - PULMONARY EMBOLISM [None]
